FAERS Safety Report 7960073-6 (Version None)
Quarter: 2011Q4

REPORT INFORMATION
  Report Type: 
  Country: None (occurrence: None)
  Receive Date: 20111206
  Receipt Date: 20111121
  Transmission Date: 20120403
  Serious: Yes (Death)
  Sender: FDA-Public Use
  Company Number: US-JUTA GMBH-2011-20999

PATIENT
  Age: 39 Year
  Sex: Male

DRUGS (1)
  1. METFORMIN HCL [Suspect]
     Indication: SUICIDE ATTEMPT
     Dosage: 90 GRAMS SINGLE INGESTION

REACTIONS (3)
  - LACTIC ACIDOSIS [None]
  - INTENTIONAL OVERDOSE [None]
  - SHOCK [None]
